FAERS Safety Report 8160196-5 (Version None)
Quarter: 2012Q1

REPORT INFORMATION
  Report Type: 
  Country: None (occurrence: None)
  Receive Date: 20120223
  Receipt Date: 20120221
  Transmission Date: 20120608
  Serious: No
  Sender: FDA-Public Use
  Company Number: US-PFIZER INC-2012045719

PATIENT
  Sex: Male
  Weight: 82 kg

DRUGS (4)
  1. ACETAMINOPHEN [Suspect]
     Indication: PAIN
     Dosage: UNK
     Dates: start: 20120201, end: 20120201
  2. DIOVAN HCT [Concomitant]
     Indication: HYPERTENSION
     Dosage: 160/12.5MG DAILY
  3. LIPITOR [Suspect]
     Indication: BLOOD CHOLESTEROL INCREASED
     Dosage: 10 MG, DAILY
     Dates: end: 20120220
  4. MULTI-VITAMINS [Concomitant]
     Dosage: UNK

REACTIONS (7)
  - NECK PAIN [None]
  - DRUG INEFFECTIVE [None]
  - MUSCULOSKELETAL PAIN [None]
  - ARTHRALGIA [None]
  - PAIN [None]
  - PAIN IN EXTREMITY [None]
  - MUSCULOSKELETAL STIFFNESS [None]
